FAERS Safety Report 15242308 (Version 1)
Quarter: 2018Q3

REPORT INFORMATION
  Report Type: Report from Study
  Country: GB (occurrence: GB)
  Receive Date: 20180806
  Receipt Date: 20180806
  Transmission Date: 20181010
  Serious: Yes (Hospitalization)
  Sender: FDA-Public Use
  Company Number: GB-ROCHE-2162000

PATIENT
  Age: 68 Year
  Sex: Male

DRUGS (14)
  1. LASIX [Concomitant]
     Active Substance: FUROSEMIDE
     Route: 048
  2. TYLENOL [Concomitant]
     Active Substance: ACETAMINOPHEN
     Indication: PAIN
     Route: 048
  3. VITAMIN C [Concomitant]
     Active Substance: ASCORBIC ACID
     Route: 048
  4. RITUXIMAB. [Suspect]
     Active Substance: RITUXIMAB
     Indication: ANTI-NEUTROPHIL CYTOPLASMIC ANTIBODY POSITIVE VASCULITIS
     Route: 042
     Dates: start: 20171115
  5. COZAAR [Concomitant]
     Active Substance: LOSARTAN POTASSIUM
     Route: 048
  6. BACTRIM [Concomitant]
     Active Substance: SULFAMETHOXAZOLE\TRIMETHOPRIM
     Route: 048
  7. LIPITOR [Concomitant]
     Active Substance: ATORVASTATIN CALCIUM
     Route: 048
  8. OSCAL (CALCIUM CARBONATE) [Concomitant]
     Route: 048
  9. FOSAMAX [Concomitant]
     Active Substance: ALENDRONATE SODIUM
     Route: 048
     Dates: start: 20150707
  10. ROSE GERANIUM [Concomitant]
     Indication: NASAL CRUSTING
     Route: 045
     Dates: start: 20170331
  11. WARFARIN [Concomitant]
     Active Substance: WARFARIN
     Route: 048
     Dates: start: 20150727
  12. NORVASC [Concomitant]
     Active Substance: AMLODIPINE BESYLATE
     Route: 048
  13. BENADRYL ALLERGY [Concomitant]
     Active Substance: DIPHENHYDRAMINE HYDROCHLORIDE
     Dosage: AS NEEDED
     Route: 048
  14. SODIUM CHLORIDE. [Concomitant]
     Active Substance: SODIUM CHLORIDE
     Indication: NASAL IRRIGATION
     Route: 045

REACTIONS (1)
  - Granulomatosis with polyangiitis [Not Recovered/Not Resolved]

NARRATIVE: CASE EVENT DATE: 20180725
